FAERS Safety Report 7909873-9 (Version None)
Quarter: 2011Q4

REPORT INFORMATION
  Report Type: 
  Country: None (occurrence: None)
  Receive Date: 20111111
  Receipt Date: 20111107
  Transmission Date: 20120403
  Serious: Yes (Hospitalization)
  Sender: FDA-Public Use
  Company Number: US-CELGENEUS-087-C5013-11110981

PATIENT
  Sex: Male
  Weight: 69.4 kg

DRUGS (16)
  1. FLUCONAZOLE [Concomitant]
     Indication: ANTIFUNGAL PROPHYLAXIS
     Dosage: 100 MILLIGRAM
     Route: 048
     Dates: start: 20111025, end: 20111102
  2. LEVOTHYROXINE SODIUM HYDRATE [Concomitant]
     Indication: HYPOTHYROIDISM
     Dosage: 125 MICROGRAM
     Route: 048
     Dates: start: 20110514
  3. DISOPYRAMIDE PHOSPHATE [Concomitant]
     Dosage: 150 MILLIGRAM
     Route: 048
     Dates: start: 20110424
  4. LANSOPRAZOLE [Concomitant]
     Dosage: 30 MILLIGRAM
     Route: 048
     Dates: start: 20110405
  5. MONOAMMONIUM GLYCYRRHIZINATE [Concomitant]
     Dosage: 5 AMPULE
     Route: 050
     Dates: start: 20111026, end: 20111031
  6. BISOPROLOL FUMARATE [Concomitant]
     Indication: HYPERTENSION
     Dosage: 2.5 MILLIGRAM
     Route: 048
     Dates: start: 20110424
  7. CILOSTAZOL [Concomitant]
     Indication: THROMBOSIS PROPHYLAXIS
     Dosage: 100 MILLIGRAM
     Route: 048
     Dates: start: 20110424
  8. SULFAMETHOXAZOLE AND TRIMETHOPRIM [Concomitant]
     Indication: INFECTION PROPHYLAXIS
     Dosage: .5 TABLET
     Route: 048
     Dates: start: 20110405, end: 20111024
  9. VALACYCLOVIR HYDROCHLORIDE [Concomitant]
     Indication: INFECTION PROPHYLAXIS
     Dosage: 500 MILLIGRAM
     Route: 048
     Dates: start: 20111025
  10. MAGNESIUM OXIDE [Concomitant]
     Indication: CONSTIPATION
     Dosage: 1980 MILLIGRAM
     Route: 048
     Dates: start: 20110406
  11. ALLOPURINOL [Concomitant]
     Dosage: 100 MILLIGRAM
     Route: 048
     Dates: start: 20110405
  12. MECOBALAMIN [Concomitant]
     Indication: PERIPHERAL SENSORY NEUROPATHY
     Dosage: 1.5 MILLIGRAM
     Route: 048
     Dates: start: 20110405
  13. LENALIDOMIDE [Suspect]
     Dosage: 35 MILLIGRAM
     Route: 048
     Dates: start: 20111025, end: 20111102
  14. SULFAMETHOXAZOLE AND TRIMETHOPRIM [Concomitant]
     Dosage: 1 TABLET
     Route: 048
     Dates: start: 20111025
  15. UBIDECARENONE [Concomitant]
     Indication: CARDIOVASCULAR EVENT PROPHYLAXIS
     Dosage: 30 MILLIGRAM
     Route: 048
     Dates: start: 20110405
  16. MONOAMMONIUM GLYCYRRHIZINATE [Concomitant]

REACTIONS (1)
  - ELECTROCARDIOGRAM QT PROLONGED [None]
